FAERS Safety Report 5803818-3 (Version None)
Quarter: 2008Q3

REPORT INFORMATION
  Report Type: 
  Country: None (occurrence: None)
  Receive Date: 20080708
  Receipt Date: 20080703
  Transmission Date: 20090109
  Serious: Yes (Other)
  Sender: FDA-Public Use
  Company Number: US-BOEHRINGER INGELHEIM GMBH, GERMANY-2008-BP-10298RO

PATIENT
  Age: 20 Year
  Sex: Female

DRUGS (5)
  1. ZALEPLON [Suspect]
     Indication: INSOMNIA
  2. ZALEPLON [Suspect]
  3. FLUOXETINE [Suspect]
  4. ZIPRASIDONE HCL [Suspect]
  5. ALESSE [Suspect]
     Indication: CONTRACEPTION
     Route: 048

REACTIONS (3)
  - DRUG INEFFECTIVE [None]
  - HALLUCINATION [None]
  - ILLUSION [None]
